FAERS Safety Report 15414612 (Version 8)
Quarter: 2019Q4

REPORT INFORMATION
  Report Type: Spontaneous
  Country: US (occurrence: US)
  Receive Date: 20180921
  Receipt Date: 20191106
  Transmission Date: 20200122
  Serious: Yes (Other)
  Sender: FDA-Public Use
  Company Number: US-PFIZER INC-2018347879

PATIENT
  Age: 54 Year
  Sex: Male

DRUGS (5)
  1. LYRICA [Suspect]
     Active Substance: PREGABALIN
     Indication: PAIN
     Dosage: 200 MG, 2X/DAY
     Dates: start: 20150401, end: 20161229
  2. DICLOFENAC [Concomitant]
     Active Substance: DICLOFENAC
     Dosage: 75 MG, 4X/DAY
  3. HYDROCODONE [Concomitant]
     Active Substance: HYDROCODONE
     Dosage: 7.5 (UNSPECIFIED UNIT), 4X/DAY
  4. HYDROCODONE [Concomitant]
     Active Substance: HYDROCODONE
     Dosage: 10 MG, 2X/DAY[1-10MG HYDROCODONE, ABOUT 3 HRS LATER I TOOK ANOTHER 10MG HYDROCODONE ]
  5. LYRICA [Suspect]
     Active Substance: PREGABALIN
     Indication: PAIN IN EXTREMITY
     Dosage: UNK, (TOOK TOO MANY PREGABALIN ABOUT 1000-1200 MG/1400 MG OF PREGABALIN WITHIN AN HOUR^S TIME)
     Dates: start: 20161228, end: 20161228

REACTIONS (9)
  - Memory impairment [Unknown]
  - Loss of consciousness [Unknown]
  - Intentional overdose [Recovered/Resolved]
  - Psychotic disorder [Unknown]
  - Irritability [Recovered/Resolved]
  - Insomnia [Recovered/Resolved]
  - Aggression [Recovered/Resolved]
  - Feeling abnormal [Recovered/Resolved]
  - Abnormal behaviour [Recovered/Resolved]

NARRATIVE: CASE EVENT DATE: 20150604
